FAERS Safety Report 4634037-4 (Version None)
Quarter: 2005Q2

REPORT INFORMATION
  Report Type: 
  Country: None (occurrence: None)
  Receive Date: 20050413
  Receipt Date: 20050331
  Transmission Date: 20051028
  Serious: Yes (Other)
  Sender: FDA-Public Use
  Company Number: DE-JNJFOC-20050203934

PATIENT
  Sex: Female
  Weight: 50 kg

DRUGS (1)
  1. CONCERTA [Suspect]
     Route: 049

REACTIONS (2)
  - SYNCOPE [None]
  - TACHYCARDIA [None]
